FAERS Safety Report 7580249-X (Version None)
Quarter: 2011Q2

REPORT INFORMATION
  Report Type: 
  Country: None (occurrence: None)
  Receive Date: 20110629
  Receipt Date: 20110615
  Transmission Date: 20111010
  Serious: Yes (Other)
  Sender: FDA-Public Use
  Company Number: GB-VALEANT-2011VX001740

PATIENT
  Age: 73 Year
  Sex: Female

DRUGS (4)
  1. FLUOROURACIL [Suspect]
     Indication: ACTINIC KERATOSIS
     Route: 061
  2. FLUOROURACIL [Suspect]
     Indication: SKIN LESION
     Route: 061
  3. E.45 [Concomitant]
     Indication: SKIN DISORDER
     Route: 061
  4. DERMOL SOL [Concomitant]
     Indication: SKIN DISORDER
     Route: 061

REACTIONS (1)
  - APPLICATION SITE HYPERAESTHESIA [None]
